FAERS Safety Report 8317188 (Version 2)
Quarter: 2012Q4

REPORT INFORMATION
  Report Type: 
  Country: US (occurrence: US)
  Receive Date: 20111230
  Receipt Date: 20120920
  Transmission Date: 20130627
  Serious: No
  Sender: FDA-Public Use
  Company Number: US-B.I. PHARMACEUTICALS,INC./RIDGEFIELD-2011-BP-28934BP

PATIENT
  Age: 85 None
  Sex: Male

DRUGS (8)
  1. PRADAXA [Suspect]
     Indication: ATRIAL FIBRILLATION
     Dosage: 300 mg
     Route: 048
     Dates: start: 201102
  2. PRADAXA [Suspect]
     Dosage: 300 mg
     Route: 048
     Dates: start: 201112
  3. RYTHMOL [Concomitant]
     Indication: HEART RATE
     Dosage: 450 mg
     Route: 048
  4. DIGOXIN [Concomitant]
     Indication: CARDIAC DISORDER
     Dosage: 0.125 mcg
     Route: 048
  5. GLIMEPIRIDE [Concomitant]
  6. LIPISOL [Concomitant]
  7. HCTZ [Concomitant]
     Dosage: 12.5 mg
     Route: 048
  8. LISINOPRIL [Concomitant]
     Indication: HYPERTENSION
     Dosage: 2.5 mg
     Route: 048

REACTIONS (4)
  - Haematuria [Recovered/Resolved]
  - Urinary tract infection [Recovered/Resolved]
  - Haematuria [Not Recovered/Not Resolved]
  - Blood urine present [Not Recovered/Not Resolved]
